FAERS Safety Report 24063455 (Version 4)
Quarter: 2024Q3

REPORT INFORMATION
  Report Type: Spontaneous
  Country: CA (occurrence: CA)
  Receive Date: 20240709
  Receipt Date: 20240925
  Transmission Date: 20241017
  Serious: Yes (Hospitalization, Other)
  Sender: CELLTRION
  Company Number: CA-PFIZER INC-202400204333

PATIENT

DRUGS (9)
  1. INFLIXIMAB [Suspect]
     Active Substance: INFLIXIMAB
     Indication: Crohn^s disease
     Dosage: 375 MG FIRST LOADING DOSE IN HOSPITAL
     Route: 042
     Dates: start: 20240621
  2. INFLECTRA [Suspect]
     Active Substance: INFLIXIMAB-DYYB
     Indication: Crohn^s disease
     Dosage: 5 MG/KG
     Dates: start: 20240705
  3. INFLECTRA [Suspect]
     Active Substance: INFLIXIMAB-DYYB
     Dosage: 5 MG/KG
     Dates: start: 20240802
  4. IRON [Concomitant]
     Active Substance: IRON
  5. AMLODIPINE [Concomitant]
     Active Substance: AMLODIPINE BESYLATE
  6. VITAMIN D NOS [Concomitant]
     Active Substance: CHOLECALCIFEROL\ERGOCALCIFEROL
  7. RAMIPRIL [Concomitant]
     Active Substance: RAMIPRIL
  8. PREDNISONE [Concomitant]
     Active Substance: PREDNISONE
  9. MAGNESIUM OXIDE [Concomitant]
     Active Substance: MAGNESIUM OXIDE

REACTIONS (4)
  - Hypokalaemia [Unknown]
  - Hypophosphataemia [Unknown]
  - Condition aggravated [Recovering/Resolving]
  - Serum ferritin increased [Unknown]

NARRATIVE: CASE EVENT DATE: 20240601
